FAERS Safety Report 19999048 (Version 2)
Quarter: 2021Q4

REPORT INFORMATION
  Report Type: Spontaneous
  Country: US (occurrence: US)
  Receive Date: 20211026
  Receipt Date: 20211102
  Transmission Date: 20220303
  Serious: Yes (Other)
  Sender: FDA-Public Use
  Company Number: US-PFIZER INC-202101386176

PATIENT
  Age: 88 Year
  Sex: Male

DRUGS (1)
  1. AMIODARONE HYDROCHLORIDE [Interacting]
     Active Substance: AMIODARONE HYDROCHLORIDE
     Indication: Atrial fibrillation
     Dosage: UNK

REACTIONS (2)
  - Drug interaction [Recovered/Resolved]
  - Acute respiratory distress syndrome [Recovered/Resolved]
